FAERS Safety Report 11573396 (Version 1)
Quarter: 2015Q3

REPORT INFORMATION
  Report Type: Report from Study
  Country: AR (occurrence: AR)
  Receive Date: 20150929
  Receipt Date: 20150929
  Transmission Date: 20151125
  Serious: Yes (Hospitalization)
  Sender: FDA-Public Use
  Company Number: AR-ABBVIE-15K-007-1469592-00

PATIENT
  Age: 45 Year
  Sex: Female

DRUGS (1)
  1. HUMIRA [Suspect]
     Active Substance: ADALIMUMAB
     Indication: RHEUMATOID ARTHRITIS
     Route: 058
     Dates: start: 20090901, end: 201508

REACTIONS (6)
  - Lymphadenopathy [Recovering/Resolving]
  - Tongue disorder [Unknown]
  - Sarcoidosis [Not Recovered/Not Resolved]
  - Pyrexia [Recovering/Resolving]
  - Laryngeal oedema [Recovering/Resolving]
  - Granuloma [Not Recovered/Not Resolved]

NARRATIVE: CASE EVENT DATE: 201506
